FAERS Safety Report 12199212 (Version 1)
Quarter: 2016Q1

REPORT INFORMATION
  Report Type: Spontaneous
  Country: US (occurrence: US)
  Receive Date: 20160322
  Receipt Date: 20160322
  Transmission Date: 20160526
  Serious: No
  Sender: FDA-Public Use
  Company Number: US-BAUSCH-BL-2015-016142

PATIENT
  Age: 83 Year
  Sex: Male
  Weight: 102.15 kg

DRUGS (2)
  1. BACITRACIN ZINC AND POLYMYXIN B SULFATE [Suspect]
     Active Substance: BACITRACIN ZINC\POLYMYXIN B SULFATE
     Indication: PROPHYLAXIS
     Route: 061
  2. BACITRACIN ZINC AND POLYMYXIN B SULFATE [Suspect]
     Active Substance: BACITRACIN ZINC\POLYMYXIN B SULFATE
     Indication: EYE INFECTION
     Route: 061

REACTIONS (2)
  - Discomfort [Not Recovered/Not Resolved]
  - Incorrect drug administration duration [Unknown]
